FAERS Safety Report 7864653-8 (Version None)
Quarter: 2011Q4

REPORT INFORMATION
  Report Type: 
  Country: None (occurrence: None)
  Receive Date: 20111026
  Receipt Date: 20111011
  Transmission Date: 20120403
  Serious: Yes (Hospitalization)
  Sender: FDA-Public Use
  Company Number: 2011MA015001

PATIENT
  Age: 77 Year
  Sex: Female

DRUGS (4)
  1. OLMESARTAN MEDOXOMIL [Concomitant]
  2. MEDOXOMIL [Concomitant]
  3. HYDROCHLOROTHIAZIDE [Suspect]
  4. PAROXETINE HCL [Suspect]

REACTIONS (3)
  - BLOOD OSMOLARITY DECREASED [None]
  - HYPONATRAEMIA [None]
  - ASTHENIA [None]
